FAERS Safety Report 4823876-2 (Version None)
Quarter: 2005Q4

REPORT INFORMATION
  Report Type: 
  Country: None (occurrence: None)
  Receive Date: 20051107
  Receipt Date: 20051025
  Transmission Date: 20060501
  Serious: Yes (Other)
  Sender: FDA-Public Use
  Company Number: 2005147399

PATIENT
  Age: 26 Year
  Sex: Female
  Weight: 53.0709 kg

DRUGS (2)
  1. ROGAINE [Suspect]
     Indication: ALOPECIA
     Dosage: 1 1/2  1 3/4ML TWICE DAILY, TOPICAL
     Route: 061
     Dates: start: 20050801, end: 20051018
  2. MULTIVITAMINS (ASCORBIC ACID, ERGOCALCIFEROL, FOLIC ACID, NICOTINAMIDE [Concomitant]

REACTIONS (7)
  - BREAST TENDERNESS [None]
  - DIZZINESS [None]
  - HEART RATE INCREASED [None]
  - HYPOTENSION [None]
  - SWELLING FACE [None]
  - VISION BLURRED [None]
  - WEIGHT INCREASED [None]
